FAERS Safety Report 4870380-1 (Version None)
Quarter: 2005Q4

REPORT INFORMATION
  Report Type: 
  Country: None (occurrence: None)
  Receive Date: 20051228
  Receipt Date: 20051212
  Transmission Date: 20060501
  Serious: Yes (Other)
  Sender: FDA-Public Use
  Company Number: US200512002041

PATIENT
  Age: 30 Year
  Sex: Female

DRUGS (1)
  1. PROZAC [Suspect]

REACTIONS (7)
  - ABNORMAL BEHAVIOUR [None]
  - AGGRESSION [None]
  - ANGER [None]
  - DRUG EXPOSURE DURING PREGNANCY [None]
  - DRUG INEFFECTIVE [None]
  - IMPAIRED DRIVING ABILITY [None]
  - TREATMENT NONCOMPLIANCE [None]
